FAERS Safety Report 5367977-1 (Version None)
Quarter: 2007Q2

REPORT INFORMATION
  Report Type: 
  Country: None (occurrence: None)
  Receive Date: 20070619
  Receipt Date: 20070608
  Transmission Date: 20071010
  Serious: Yes (Other)
  Sender: FDA-Public Use
  Company Number: 2007BI012271

PATIENT
  Age: 49 Year
  Sex: Female
  Weight: 96 kg

DRUGS (5)
  1. AVONEX [Suspect]
     Indication: MULTIPLE SCLEROSIS
     Dosage: 30 UG; QW; IM
     Route: 030
     Dates: start: 20060606, end: 20070501
  2. CALCICHEW D3 [Concomitant]
  3. CEFADROXIL [Concomitant]
  4. DOXYCYCLINE [Concomitant]
  5. METHYLPREDNISOLONE [Concomitant]

REACTIONS (2)
  - CONTUSION [None]
  - THROMBOCYTOPENIA [None]
